FAERS Safety Report 15405146 (Version 2)
Quarter: 2020Q2

REPORT INFORMATION
  Report Type: Spontaneous
  Country: US (occurrence: US)
  Receive Date: 20180920
  Receipt Date: 20200401
  Transmission Date: 20200713
  Serious: Yes (Life-Threatening, Hospitalization, Other)
  Sender: FDA-Public Use
  Company Number: US-AUROBINDO-AUR-APL-2018-045974

PATIENT
  Age: 63 Year
  Sex: Female

DRUGS (4)
  1. WARFARIN [Concomitant]
     Active Substance: WARFARIN
     Indication: ANTICOAGULANT THERAPY
     Dosage: UNK
  2. SEVOFLURANE. [Suspect]
     Active Substance: SEVOFLURANE
     Indication: HYPNOTHERAPY
     Dosage: UNK
     Route: 065
  3. AMIODARONE HYDROCHLORIDE. [Suspect]
     Active Substance: AMIODARONE HYDROCHLORIDE
     Indication: ATRIAL FIBRILLATION
     Dosage: UNK
     Route: 065
  4. PROPOFOL. [Suspect]
     Active Substance: PROPOFOL
     Indication: HYPNOTHERAPY
     Dosage: UNK
     Route: 065

REACTIONS (10)
  - Electrocardiogram QT prolonged [Recovered/Resolved]
  - Torsade de pointes [Recovered/Resolved]
  - Myxoedema coma [Recovered/Resolved]
  - Hypoxia [Recovered/Resolved]
  - Somnolence [Unknown]
  - Hypothyroidism [Unknown]
  - Apnoeic attack [Recovered/Resolved]
  - Ventricular tachycardia [Recovered/Resolved]
  - Pulseless electrical activity [Recovered/Resolved]
  - Haemodynamic instability [Recovered/Resolved]
